FAERS Safety Report 26132113 (Version 1)
Quarter: 2025Q4

REPORT INFORMATION
  Report Type: Spontaneous
  Country: JP (occurrence: JP)
  Receive Date: 20251208
  Receipt Date: 20251208
  Transmission Date: 20260118
  Serious: Yes (Hospitalization, Other)
  Sender: CARLSBAD TECHNOLOGY, INC.
  Company Number: JP-CARLSBAD-2025JPCTILIT00006

PATIENT
  Age: 28 Year
  Sex: Male
  Weight: 76.7 kg

DRUGS (1)
  1. CIPROFLOXACIN [Suspect]
     Active Substance: CIPROFLOXACIN
     Indication: Diarrhoea
     Route: 065

REACTIONS (2)
  - Glomerulonephritis [Recovering/Resolving]
  - Antineutrophil cytoplasmic antibody positive [Unknown]
